FAERS Safety Report 20457582 (Version 15)
Quarter: 2024Q1

REPORT INFORMATION
  Report Type: Report from Study
  Country: CO (occurrence: CO)
  Receive Date: 20220210
  Receipt Date: 20240119
  Transmission Date: 20240410
  Serious: Yes (Disabling, Other)
  Sender: FDA-Public Use
  Company Number: CO-NOVARTISPH-NVSC2021CO245582

PATIENT
  Sex: Male
  Weight: 170 kg

DRUGS (3)
  1. COSENTYX [Suspect]
     Active Substance: SECUKINUMAB
     Indication: Psoriasis
     Dosage: 300 MG, QMO
     Route: 058
     Dates: start: 20210101
  2. COSENTYX [Suspect]
     Active Substance: SECUKINUMAB
     Dosage: 300 MG, QMO (2 X 150 MG)
     Route: 058
     Dates: start: 20220125
  3. COSENTYX [Suspect]
     Active Substance: SECUKINUMAB
     Dosage: 300 MG, QMO (2 X 150 MG)
     Route: 065
     Dates: start: 20230727

REACTIONS (23)
  - Intervertebral disc protrusion [Unknown]
  - Spinal pain [Unknown]
  - Cataract [Unknown]
  - Decreased immune responsiveness [Unknown]
  - Illness [Unknown]
  - Sciatica [Unknown]
  - Pruritus [Unknown]
  - Stress [Unknown]
  - Mobility decreased [Unknown]
  - COVID-19 [Unknown]
  - Pyrexia [Unknown]
  - Myalgia [Unknown]
  - Chills [Unknown]
  - Memory impairment [Unknown]
  - Spinal disorder [Unknown]
  - Feeling of despair [Recovering/Resolving]
  - Influenza [Unknown]
  - Malaise [Unknown]
  - Asthenia [Unknown]
  - Skin irritation [Unknown]
  - Skin plaque [Unknown]
  - Vitiligo [Unknown]
  - Anxiety [Unknown]
